FAERS Safety Report 21248746 (Version 1)
Quarter: 2022Q3

REPORT INFORMATION
  Report Type: Spontaneous
  Country: SK (occurrence: None)
  Receive Date: 20220824
  Receipt Date: 20220824
  Transmission Date: 20221027
  Serious: Yes (Other)
  Sender: FDA-Public Use
  Company Number: SK-Merck Healthcare KGaA-9345663

PATIENT
  Sex: Female

DRUGS (2)
  1. MAVENCLAD [Suspect]
     Active Substance: CLADRIBINE
     Indication: Multiple sclerosis
     Dosage: YEAR ONE WEEK ONE THERAPY: TWO DOSAGE FORMS ON DAY 1 AND ONE DOSAGE FORM ON DAYS 2 TO 5.
     Dates: start: 20210617
  2. MAVENCLAD [Suspect]
     Active Substance: CLADRIBINE
     Dosage: YEAR ONE WEEK TWO THERAPY: TWO DOSAGE FORMS ON DAY 1 AND ONE DOSAGE FORM ON DAYS 2 TO 5.
     Dates: start: 20210713

REACTIONS (2)
  - Metastases to spine [Unknown]
  - Depression [Unknown]
